FAERS Safety Report 4473628-0 (Version None)
Quarter: 2004Q3

REPORT INFORMATION
  Report Type: 
  Country: None (occurrence: None)
  Receive Date: 20040907
  Receipt Date: 20040517
  Transmission Date: 20050211
  Serious: No
  Sender: FDA-Public Use
  Company Number: USA040567685

PATIENT
  Age: 61 Year
  Sex: Female
  Weight: 96 kg

DRUGS (2)
  1. ALIMTA [Suspect]
     Indication: NON-SMALL CELL LUNG CANCER
     Dosage: 500 MG/M2
  2. DECADRON [Concomitant]

REACTIONS (1)
  - RASH [None]
